FAERS Safety Report 25563850 (Version 2)
Quarter: 2025Q4

REPORT INFORMATION
  Report Type: Spontaneous
  Country: GB (occurrence: GB)
  Receive Date: 20250716
  Receipt Date: 20251221
  Transmission Date: 20260117
  Serious: Yes (Life-Threatening, Other)
  Sender: ACCORD
  Company Number: None

PATIENT
  Age: 87 Year
  Sex: Female
  Weight: 73 kg

DRUGS (1)
  1. CLOPIDOGREL [Suspect]
     Active Substance: CLOPIDOGREL BISULFATE
     Indication: Transient ischaemic attack
     Dosage: 75 MG, NO LONGER HAVE PACKAGING

REACTIONS (5)
  - Medication error [Unknown]
  - Arthritis [Not Recovered/Not Resolved]
  - Intracranial aneurysm [Recovered/Resolved with Sequelae]
  - Arthralgia [Not Recovered/Not Resolved]
  - Back pain [Not Recovered/Not Resolved]

NARRATIVE: CASE EVENT DATE: 20210107
